FAERS Safety Report 5742789-5 (Version None)
Quarter: 2008Q2

REPORT INFORMATION
  Report Type: 
  Country: None (occurrence: None)
  Receive Date: 20080515
  Receipt Date: 20080515
  Transmission Date: 20081010
  Serious: Yes (Hospitalization)
  Sender: FDA-Public Use
  Company Number: None

PATIENT
  Age: 75 Year
  Sex: Male

DRUGS (2)
  1. WARFARIN SODIUM [Suspect]
     Indication: HEART VALVE REPLACEMENT
     Dosage: 2.5 MG EVERY DAY PO
     Route: 048
     Dates: start: 20070816, end: 20080325
  2. ASPIRIN [Suspect]
     Dosage: 81 MG EVERY DAY PO
     Route: 048
     Dates: end: 20080325

REACTIONS (3)
  - ANAEMIA [None]
  - DYSPNOEA [None]
  - HAEMATOCHEZIA [None]
